FAERS Safety Report 23410115 (Version 1)
Quarter: 2024Q1

REPORT INFORMATION
  Report Type: Spontaneous
  Country: US (occurrence: US)
  Receive Date: 20240117
  Receipt Date: 20240117
  Transmission Date: 20240409
  Serious: Yes (Disabling)
  Sender: FDA-Public Use
  Company Number: US-TEVA-VS-3142832

PATIENT
  Age: 87 Year

DRUGS (1)
  1. ALBUTEROL SULFATE [Suspect]
     Active Substance: ALBUTEROL SULFATE
     Indication: Product used for unknown indication
     Dosage: INHALER
     Route: 055

REACTIONS (4)
  - Deafness [Unknown]
  - Aphonia [Unknown]
  - Malaise [Unknown]
  - Wrong technique in product usage process [Unknown]
